FAERS Safety Report 6643379 (Version 14)
Quarter: 2012Q4

REPORT INFORMATION
  Report Type: 
  Country: US (occurrence: US)
  Receive Date: 20080519
  Receipt Date: 20121121
  Transmission Date: 20130627
  Serious: Yes (Other)
  Sender: FDA-Public Use
  Company Number: US-ROCHE-548697

PATIENT
  Age: 27 None
  Sex: Female
  Weight: 63.5 kg

DRUGS (1)
  1. ACCUTANE [Suspect]
     Indication: ACNE
     Dosage: THE PATIENT WAS DISPENSED ACCUTANE 20 MG CAPSULE ON 18 JULY 1996.
     Route: 048
     Dates: start: 19960718, end: 19960919

REACTIONS (20)
  - Crohn^s disease [Recovering/Resolving]
  - Inflammatory bowel disease [Unknown]
  - Colitis [Unknown]
  - Emotional distress [Unknown]
  - Carcinoid tumour [Recovered/Resolved]
  - Ovarian cyst [Recovered/Resolved]
  - Polycystic ovaries [Not Recovered/Not Resolved]
  - Haemangioma of liver [Unknown]
  - Hepatic lesion [Not Recovered/Not Resolved]
  - Malignant neoplasm of uterine adnexa [Unknown]
  - Cholecystitis chronic [Recovered/Resolved]
  - Abdominal pain [Not Recovered/Not Resolved]
  - Vision blurred [Unknown]
  - Blepharitis [Unknown]
  - Pilonidal cyst [Unknown]
  - Irritable bowel syndrome [Unknown]
  - Cholelithiasis [Recovered/Resolved]
  - Endometriosis [Not Recovered/Not Resolved]
  - Vitamin B12 deficiency [Recovered/Resolved]
  - Intestinal polyp [Unknown]
